FAERS Safety Report 10646544 (Version 1)
Quarter: 2014Q4

REPORT INFORMATION
  Report Type: Spontaneous
  Country: US (occurrence: US)
  Receive Date: 20141211
  Receipt Date: 20141211
  Transmission Date: 20150529
  Serious: No
  Sender: FDA-Public Use
  Company Number: US-PFIZER INC-2014339363

PATIENT
  Age: 58 Year
  Sex: Male

DRUGS (1)
  1. ATORVASTATIN CALCIUM. [Suspect]
     Active Substance: ATORVASTATIN CALCIUM
     Dosage: UNK

REACTIONS (6)
  - Musculoskeletal chest pain [Unknown]
  - Feeling abnormal [Unknown]
  - Nervousness [Unknown]
  - Anxiety [Unknown]
  - Heart rate irregular [Unknown]
  - Palpitations [Unknown]
